FAERS Safety Report 17419247 (Version 1)
Quarter: 2020Q1

REPORT INFORMATION
  Report Type: Spontaneous
  Country: CN (occurrence: CN)
  Receive Date: 20200214
  Receipt Date: 20200214
  Transmission Date: 20200409
  Serious: Yes (Hospitalization)
  Sender: FDA-Public Use
  Company Number: CN-BAYER-2020-025135

PATIENT
  Age: 65 Year
  Sex: Male
  Weight: 56 kg

DRUGS (1)
  1. AVELOX [Suspect]
     Active Substance: MOXIFLOXACIN HYDROCHLORIDE
     Indication: PNEUMONIA
     Dosage: 250 ML, QD
     Route: 041
     Dates: start: 20200117, end: 20200121

REACTIONS (3)
  - Arthralgia [Recovering/Resolving]
  - Joint effusion [Recovering/Resolving]
  - Joint swelling [Recovering/Resolving]

NARRATIVE: CASE EVENT DATE: 20200121
